FAERS Safety Report 19689925 (Version 5)
Quarter: 2021Q3

REPORT INFORMATION
  Report Type: Report from Study
  Country: None (occurrence: CO)
  Receive Date: 20210811
  Receipt Date: 20210906
  Transmission Date: 20211014
  Serious: Yes (Other)
  Sender: FDA-Public Use
  Company Number: CO-ABBVIE-21K-036-4033628-00

PATIENT
  Age: 67 Year
  Sex: Female
  Weight: 56 kg

DRUGS (4)
  1. VENCLEXTA [Suspect]
     Active Substance: VENETOCLAX
     Route: 048
     Dates: start: 20210810
  2. VENCLEXTA [Suspect]
     Active Substance: VENETOCLAX
     Indication: CHRONIC LYMPHOCYTIC LEUKAEMIA
     Route: 048
     Dates: start: 20210715, end: 20210809
  3. PREDNISOLONE. [Concomitant]
     Active Substance: PREDNISOLONE
     Indication: PRODUCT USED FOR UNKNOWN INDICATION
  4. ALLOPURINOL. [Concomitant]
     Active Substance: ALLOPURINOL
     Indication: PRODUCT USED FOR UNKNOWN INDICATION

REACTIONS (14)
  - Dermatitis [Recovering/Resolving]
  - Malaise [Recovering/Resolving]
  - Adverse drug reaction [Unknown]
  - Peripheral swelling [Recovering/Resolving]
  - Somnolence [Recovering/Resolving]
  - Dizziness [Recovering/Resolving]
  - Nausea [Recovering/Resolving]
  - Asphyxia [Recovering/Resolving]
  - Decreased appetite [Recovering/Resolving]
  - Oxygen saturation decreased [Recovering/Resolving]
  - Inflammation [Recovered/Resolved]
  - Nausea [Recovered/Resolved]
  - Adverse food reaction [Recovering/Resolving]
  - Heart rate increased [Recovering/Resolving]

NARRATIVE: CASE EVENT DATE: 2021
